FAERS Safety Report 8832382 (Version 2)
Quarter: 2013Q4

REPORT INFORMATION
  Report Type: Spontaneous
  Country: US (occurrence: US)
  Receive Date: 20121009
  Receipt Date: 20131101
  Transmission Date: 20140711
  Serious: No
  Sender: FDA-Public Use
  Company Number: US-009507513-1209USA008282

PATIENT
  Sex: Female

DRUGS (2)
  1. NUVARING [Suspect]
     Indication: CONTRACEPTION
     Dosage: UNK
     Dates: start: 2009
  2. NUVARING [Suspect]
     Indication: MENSTRUAL DISCOMFORT

REACTIONS (3)
  - Metrorrhagia [Recovering/Resolving]
  - Device expulsion [Unknown]
  - Off label use [Unknown]
